FAERS Safety Report 7789096-7 (Version None)
Quarter: 2011Q3

REPORT INFORMATION
  Report Type: 
  Country: None (occurrence: None)
  Receive Date: 20110930
  Receipt Date: 20110922
  Transmission Date: 20111222
  Serious: Yes (Hospitalization)
  Sender: FDA-Public Use
  Company Number: US-NOVOPROD-335720

PATIENT
  Age: 53 Year
  Sex: Male

DRUGS (5)
  1. METFORMIN HCL [Concomitant]
  2. AMARYL [Concomitant]
  3. AMARYL [Concomitant]
  4. LIPITOR [Concomitant]
  5. VICTOZA [Suspect]
     Indication: TYPE 2 DIABETES MELLITUS
     Dosage: 1.8
     Route: 058
     Dates: start: 20110101

REACTIONS (1)
  - PANCREATITIS [None]
